FAERS Safety Report 17298252 (Version 1)
Quarter: 2020Q1

REPORT INFORMATION
  Report Type: Spontaneous
  Country: US (occurrence: US)
  Receive Date: 20200103
  Receipt Date: 20200103
  Transmission Date: 20200409
  Serious: No
  Sender: FDA-Public Use
  Company Number: None

PATIENT
  Age: 39 Year
  Sex: Female

DRUGS (1)
  1. TALTZ [Suspect]
     Active Substance: IXEKIZUMAB
     Dosage: ?          OTHER DOSE:1;OTHER FREQUENCY:OTHER;?
     Route: 058
     Dates: start: 20190901

REACTIONS (1)
  - Candida infection [None]
